FAERS Safety Report 9371117 (Version 1)
Quarter: 2013Q2

REPORT INFORMATION
  Report Type: Report from Study
  Country: US (occurrence: US)
  Receive Date: 20130627
  Receipt Date: 20130627
  Transmission Date: 20140414
  Serious: Yes (Hospitalization)
  Sender: FDA-Public Use
  Company Number: US-ROCHE-1237813

PATIENT
  Sex: Female

DRUGS (1)
  1. RITUXIMAB [Suspect]
     Indication: PRODUCT USED FOR UNKNOWN INDICATION
     Route: 042
     Dates: start: 20120801

REACTIONS (8)
  - Pneumonia [Unknown]
  - Gastrointestinal fungal infection [Unknown]
  - Urinary tract infection [Unknown]
  - Lung infection [Unknown]
  - Lower respiratory tract infection bacterial [Unknown]
  - International normalised ratio abnormal [Unknown]
  - Insomnia [Unknown]
  - Feeding disorder [Unknown]
